FAERS Safety Report 5862021-1 (Version None)
Quarter: 2008Q3

REPORT INFORMATION
  Report Type: 
  Country: None (occurrence: None)
  Receive Date: 20080827
  Receipt Date: 20080722
  Transmission Date: 20090109
  Serious: No
  Sender: FDA-Public Use
  Company Number: US-ABBOTT-08P-163-0465114-00

PATIENT
  Sex: Male

DRUGS (7)
  1. NIASPAN [Suspect]
     Indication: HYPERCHOLESTEROLAEMIA
     Route: 048
     Dates: start: 20080709, end: 20080721
  2. NIASPAN [Suspect]
     Dates: start: 20080728
  3. ACETYLSALICYLIC ACID SRT [Concomitant]
     Indication: DRUG USE FOR UNKNOWN INDICATION
     Route: 048
     Dates: end: 20080717
  4. CLOPIDOGREL [Concomitant]
     Indication: DRUG USE FOR UNKNOWN INDICATION
     Route: 048
     Dates: end: 20080718
  5. AMOXICILLIN AND CLAVULANATE POTASSIUM [Concomitant]
     Indication: ABSCESS
     Dosage: 875/125 MG ONE TAB BID
     Route: 048
     Dates: start: 20080717
  6. OMEGA FISH OIL [Concomitant]
     Indication: DRUG USE FOR UNKNOWN INDICATION
     Route: 048
  7. MULTI-VITAMIN [Concomitant]
     Indication: DRUG USE FOR UNKNOWN INDICATION
     Route: 048

REACTIONS (5)
  - ABSCESS [None]
  - BURNING SENSATION [None]
  - FLUSHING [None]
  - NAUSEA [None]
  - PRURITUS [None]
